FAERS Safety Report 4343446-2 (Version None)
Quarter: 2004Q2

REPORT INFORMATION
  Report Type: 
  Country: None (occurrence: None)
  Receive Date: 20040419
  Receipt Date: 20040402
  Transmission Date: 20050107
  Serious: Yes (Death)
  Sender: FDA-Public Use
  Company Number: 190759

PATIENT
  Age: 68 Year
  Sex: Female

DRUGS (16)
  1. AVONEX [Suspect]
     Indication: MULTIPLE SCLEROSIS
     Dosage: 30 MCG QW IM
     Route: 030
     Dates: start: 20001215, end: 20030814
  2. AVONEX [Suspect]
     Indication: MULTIPLE SCLEROSIS
     Dosage: 30 MCG QW IM
     Route: 030
     Dates: start: 20030815, end: 20040114
  3. DILANTIN [Concomitant]
  4. AMARYL [Concomitant]
  5. TRANXENE [Concomitant]
  6. ACTOS /USA/ [Concomitant]
  7. CARDIZEM [Concomitant]
  8. PRILOSEC [Concomitant]
  9. AMBIEN [Concomitant]
  10. TOPAMAX [Concomitant]
  11. CELEBREX [Concomitant]
  12. NEURONTIN [Concomitant]
  13. SYNTHROID [Concomitant]
  14. PLAVIX [Concomitant]
  15. UNIVASC [Concomitant]
  16. NITRODUR II [Concomitant]

REACTIONS (1)
  - CEREBROVASCULAR ACCIDENT [None]
